FAERS Safety Report 7731725-8 (Version None)
Quarter: 2011Q3

REPORT INFORMATION
  Report Type: 
  Country: None (occurrence: None)
  Receive Date: 20110906
  Receipt Date: 20110830
  Transmission Date: 20111222
  Serious: Yes (Other)
  Sender: FDA-Public Use
  Company Number: PHHY2011CL73967

PATIENT
  Sex: Female

DRUGS (9)
  1. LEVOTHYROXINE SODIUM [Concomitant]
  2. TAMIFLU [Concomitant]
  3. KOPODEX [Concomitant]
  4. CLOZAPINE [Suspect]
     Indication: SCHIZOPHRENIA
     Dosage: 200 MG, DAILY
     Dates: start: 20090706, end: 20110817
  5. HIPECOR [Concomitant]
  6. NEUPOGEN [Concomitant]
     Dosage: 1 DF, QD
     Dates: start: 20110819
  7. TOPAMAX [Concomitant]
  8. LITHIUM CARBONATE [Concomitant]
  9. RAVOTRIL [Concomitant]

REACTIONS (5)
  - PYREXIA [None]
  - VIRAL INFECTION [None]
  - NEUTROPENIA [None]
  - NEUTROPHIL COUNT DECREASED [None]
  - WHITE BLOOD CELL COUNT DECREASED [None]
